FAERS Safety Report 5773323-1 (Version None)
Quarter: 2008Q2

REPORT INFORMATION
  Report Type: 
  Country: None (occurrence: None)
  Receive Date: 20080601
  Receipt Date: 20080324
  Transmission Date: 20081010
  Serious: No
  Sender: FDA-Public Use
  Company Number: US200704005903

PATIENT
  Age: 42 Year
  Sex: Female
  Weight: 126.5 kg

DRUGS (4)
  1. BYETTA [Suspect]
     Indication: TYPE 2 DIABETES MELLITUS
     Dosage: 5 UG, 2/D, SUBCUTANEOUS
     Route: 058
     Dates: start: 20070411
  2. ATARAX (ALPRAZOLAM) [Concomitant]
  3. ANTIVERT (MECLONIZINE HYDROCHLORIDE, NICOTINIC ACID) [Concomitant]
  4. NICOTIN ACID [Concomitant]

REACTIONS (7)
  - BLOOD GLUCOSE DECREASED [None]
  - BURNING SENSATION [None]
  - FEELING ABNORMAL [None]
  - MUSCULAR WEAKNESS [None]
  - MYALGIA [None]
  - NAUSEA [None]
  - WEIGHT FLUCTUATION [None]
